FAERS Safety Report 20101735 (Version 1)
Quarter: 2021Q4

REPORT INFORMATION
  Report Type: Spontaneous
  Country: DE (occurrence: None)
  Receive Date: 20211123
  Receipt Date: 20211123
  Transmission Date: 20220303
  Serious: Yes (Other)
  Sender: FDA-Public Use
  Company Number: 2021A808417

PATIENT
  Sex: Female

DRUGS (1)
  1. QUETIAPINE [Suspect]
     Active Substance: QUETIAPINE
     Route: 048

REACTIONS (5)
  - Polyneuropathy [Unknown]
  - Sensory disturbance [Unknown]
  - Pain in extremity [Unknown]
  - Fall [Unknown]
  - Hypoaesthesia [Unknown]
